FAERS Safety Report 24922850 (Version 1)
Quarter: 2025Q1

REPORT INFORMATION
  Report Type: Spontaneous
  Country: CH (occurrence: CH)
  Receive Date: 20250204
  Receipt Date: 20250204
  Transmission Date: 20250409
  Serious: Yes (Life-Threatening, Hospitalization, Other)
  Sender: PFIZER
  Company Number: None

PATIENT
  Age: 71 Year
  Sex: Female

DRUGS (18)
  1. LORAZEPAM [Interacting]
     Active Substance: LORAZEPAM
     Dosage: 2.5 MG, 3X/DAY (EVERY 8 HOURS)
     Dates: end: 20240922
  2. MORPHINE [Interacting]
     Active Substance: MORPHINE
     Dates: start: 20240919, end: 20240920
  3. MORPHINE [Interacting]
     Active Substance: MORPHINE
     Dates: start: 20240920, end: 20240922
  4. MORPHINE [Interacting]
     Active Substance: MORPHINE
     Dates: start: 20240921, end: 20240921
  5. MORPHINE [Interacting]
     Active Substance: MORPHINE
     Route: 042
     Dates: start: 20240919, end: 20240919
  6. OXAZEPAM [Interacting]
     Active Substance: OXAZEPAM
     Dosage: 7.5 MG, 3X/DAY EVERY 8 HOURS
     Dates: start: 20240919
  7. OXAZEPAM [Interacting]
     Active Substance: OXAZEPAM
     Dates: start: 20240920, end: 20240922
  8. ENOXAPARIN SODIUM [Concomitant]
     Active Substance: ENOXAPARIN SODIUM
     Dosage: 40 MG, 1X/DAY
     Route: 058
     Dates: start: 20240919, end: 20240921
  9. ALBUTEROL SULFATE\IPRATROPIUM BROMIDE [Concomitant]
     Active Substance: ALBUTEROL SULFATE\IPRATROPIUM BROMIDE
     Dosage: 1 DF, 4X/DAY (EVERY 6 HOURS)
     Route: 045
  10. ASPIRIN [Concomitant]
     Active Substance: ASPIRIN
     Dosage: 100 MG, 1X/DAY
  11. PANTOZOL [Concomitant]
     Active Substance: PANTOPRAZOLE SODIUM
     Dosage: 40 MG, 1X/DAY
  12. ALDACTONE [Concomitant]
     Active Substance: SPIRONOLACTONE
     Dosage: 25 MG, 1X/DAY
  13. SERETIDE [Concomitant]
     Active Substance: FLUTICASONE PROPIONATE\SALMETEROL XINAFOATE
     Dosage: 2 DF, 2X/DAY (EVERY 12 HOURS) 250/50 2 PUSH
  14. DAFALGAN [Concomitant]
     Active Substance: ACETAMINOPHEN
  15. EUTHYROX [Concomitant]
     Active Substance: LEVOTHYROXINE SODIUM
     Dosage: 125 UG, 1X/DAY
  16. CLOTHIAPINE [Concomitant]
     Active Substance: CLOTHIAPINE
     Dosage: 20 MG, 1X/DAY
  17. JARDIANCE [Concomitant]
     Active Substance: EMPAGLIFLOZIN
     Dosage: 10 MG, 1X/DAY
  18. AMLODIPINE [Concomitant]
     Active Substance: AMLODIPINE BESYLATE
     Dosage: 10 MG, 1X/DAY

REACTIONS (7)
  - Drug interaction [Recovered/Resolved]
  - Acute respiratory failure [Recovered/Resolved]
  - Pneumonia [Unknown]
  - Toxicity to various agents [Unknown]
  - Respiratory acidosis [Recovered/Resolved]
  - Acute kidney injury [Unknown]
  - Altered state of consciousness [Unknown]

NARRATIVE: CASE EVENT DATE: 20240901
